FAERS Safety Report 5325629-8 (Version None)
Quarter: 2007Q2

REPORT INFORMATION
  Report Type: 
  Country: None (occurrence: None)
  Receive Date: 20070515
  Receipt Date: 20070503
  Transmission Date: 20071010
  Serious: Yes (Hospitalization)
  Sender: FDA-Public Use
  Company Number: GB-GENENTECH-225591

PATIENT
  Sex: Male
  Weight: 77.2 kg

DRUGS (11)
  1. BEVACIZUMAB [Suspect]
     Indication: COLON CANCER
     Dosage: 575 MG, Q3W
     Route: 042
     Dates: start: 20060207
  2. CAPECITABINE [Suspect]
     Indication: COLON CANCER
     Dosage: 2500 MG, BID
     Route: 048
     Dates: start: 20060207
  3. SODIUM FUSIDATE [Concomitant]
     Indication: DRUG USE FOR UNKNOWN INDICATION
     Dates: start: 20060328
  4. VANCOMYCIN [Concomitant]
     Indication: DRUG USE FOR UNKNOWN INDICATION
     Dates: start: 20060328
  5. OMEPRAZOLE [Concomitant]
     Indication: DRUG USE FOR UNKNOWN INDICATION
     Dates: start: 20060322, end: 20060329
  6. FLUCLOXACILLINE [Concomitant]
     Indication: INFECTION
     Dates: start: 20060321, end: 20060329
  7. PARACETAMOL [Concomitant]
     Indication: DRUG USE FOR UNKNOWN INDICATION
  8. VITAMIN K [Concomitant]
     Dosage: 10 MG, UNK
  9. IMIPENEM [Concomitant]
     Indication: INFECTION
  10. FLUCONAZOLE [Concomitant]
     Indication: DRUG USE FOR UNKNOWN INDICATION
  11. ANTICOAGULANT THERAPY [Concomitant]
     Indication: DEEP VEIN THROMBOSIS

REACTIONS (10)
  - CELLULITIS [None]
  - DEEP VEIN THROMBOSIS [None]
  - GASTRIC HAEMORRHAGE [None]
  - HAEMATEMESIS [None]
  - HAEMOGLOBIN DECREASED [None]
  - INFECTION [None]
  - NO THERAPEUTIC RESPONSE [None]
  - OESOPHAGEAL ULCER [None]
  - ULCER HAEMORRHAGE [None]
  - VENOUS THROMBOSIS LIMB [None]
